FAERS Safety Report 4313300-0 (Version None)
Quarter: 2004Q1

REPORT INFORMATION
  Report Type: 
  Country: None (occurrence: None)
  Receive Date: 20040304
  Receipt Date: 20040224
  Transmission Date: 20041129
  Serious: No
  Sender: FDA-Public Use
  Company Number: 04P-163-0250592-00

PATIENT
  Age: 38 Year
  Sex: Male
  Weight: 58.9676 kg

DRUGS (9)
  1. KALETRA [Suspect]
     Indication: HIV INFECTION
     Dosage: 6 CAPSULE, 1 IN 1 D, PER ORAL
     Route: 048
     Dates: start: 20030201
  2. DIDANOSINE [Concomitant]
  3. ABACAVIR SULFATE [Concomitant]
  4. VIREAD [Concomitant]
  5. AMITRIPTYLINE HYDROCHLORIDE [Concomitant]
  6. ATORVASTATIN [Concomitant]
  7. NEFAZODONE HYDROCHLORIDE [Concomitant]
  8. ACYCLOVIR [Concomitant]
  9. GABAPENTIN [Concomitant]

REACTIONS (3)
  - ASEPTIC NECROSIS BONE [None]
  - BLOOD CHOLESTEROL INCREASED [None]
  - CONDITION AGGRAVATED [None]
